FAERS Safety Report 10528609 (Version 1)
Quarter: 2014Q4

REPORT INFORMATION
  Report Type: Spontaneous
  Country: TR (occurrence: TR)
  Receive Date: 20141020
  Receipt Date: 20141020
  Transmission Date: 20150528
  Serious: Yes (Other)
  Sender: FDA-Public Use
  Company Number: PHHY2014TR133746

PATIENT
  Age: 59 Year
  Sex: Female

DRUGS (1)
  1. METHOTREXATE [Suspect]
     Active Substance: METHOTREXATE
     Indication: PSORIATIC ARTHROPATHY
     Dosage: 15 MG, QW
     Route: 048

REACTIONS (4)
  - Pyrexia [Recovered/Resolved]
  - Delirium [Recovered/Resolved]
  - Pancytopenia [Recovered/Resolved]
  - Gastrointestinal disorder [Recovered/Resolved]
